FAERS Safety Report 6835870-0 (Version None)
Quarter: 2010Q3

REPORT INFORMATION
  Report Type: 
  Country: None (occurrence: None)
  Receive Date: 20100712
  Receipt Date: 20100712
  Transmission Date: 20110219
  Serious: Yes (Other)
  Sender: FDA-Public Use
  Company Number: None

PATIENT
  Age: 27 Year
  Sex: Female
  Weight: 57.1532 kg

DRUGS (2)
  1. FERAHEME [Suspect]
     Indication: DRUG INTOLERANCE
     Dosage: 510 MG ONCE IV BOLUS
     Route: 040
     Dates: start: 20100709, end: 20100709
  2. FERAHEME [Suspect]
     Indication: IRON DEFICIENCY ANAEMIA
     Dosage: 510 MG ONCE IV BOLUS
     Route: 040
     Dates: start: 20100709, end: 20100709

REACTIONS (5)
  - ABDOMINAL DISCOMFORT [None]
  - BACK PAIN [None]
  - DIARRHOEA [None]
  - FLUSHING [None]
  - URTICARIA [None]
